FAERS Safety Report 20744429 (Version 2)
Quarter: 2022Q2

REPORT INFORMATION
  Report Type: Report from Study
  Country: US (occurrence: US)
  Receive Date: 20220425
  Receipt Date: 20220613
  Transmission Date: 20220720
  Serious: Yes (Hospitalization, Other)
  Sender: FDA-Public Use
  Company Number: US-TAKEDA-2022TUS026013

PATIENT
  Sex: Female

DRUGS (4)
  1. TEDUGLUTIDE [Suspect]
     Active Substance: TEDUGLUTIDE
     Indication: Short-bowel syndrome
     Dosage: 0.205 MILLILITER, QD
     Route: 050
     Dates: start: 20210830
  2. TEDUGLUTIDE [Suspect]
     Active Substance: TEDUGLUTIDE
     Indication: Short-bowel syndrome
     Dosage: 0.205 MILLILITER, QD
     Route: 050
     Dates: start: 20210830
  3. TEDUGLUTIDE [Suspect]
     Active Substance: TEDUGLUTIDE
     Indication: Short-bowel syndrome
     Dosage: 0.205 MILLILITER, QD
     Route: 050
     Dates: start: 20210830
  4. TEDUGLUTIDE [Suspect]
     Active Substance: TEDUGLUTIDE
     Indication: Short-bowel syndrome
     Dosage: 0.205 MILLILITER, QD
     Route: 050
     Dates: start: 20210830

REACTIONS (3)
  - Respiratory tract infection viral [Unknown]
  - Weight abnormal [Unknown]
  - Weight decreased [Unknown]
